FAERS Safety Report 16055292 (Version 5)
Quarter: 2020Q2

REPORT INFORMATION
  Report Type: Report from Study
  Country: CA (occurrence: CA)
  Receive Date: 20190311
  Receipt Date: 20200423
  Transmission Date: 20200713
  Serious: No
  Sender: FDA-Public Use
  Company Number: CA-ROCHE-2165473

PATIENT
  Age: 38 Year
  Sex: Female

DRUGS (9)
  1. MARVELON [Concomitant]
     Active Substance: DESOGESTREL\ETHINYL ESTRADIOL
     Indication: CONTRACEPTION
  2. VITAMIN B2 [RIBOFLAVIN] [Concomitant]
  3. TYLENOL [Concomitant]
     Active Substance: ACETAMINOPHEN
  4. OCREVUS [Suspect]
     Active Substance: OCRELIZUMAB
     Indication: PRIMARY PROGRESSIVE MULTIPLE SCLEROSIS
     Dosage: 300 MG AT DAY 0 AND 14, THEN 600 MG EVERY 6 MONTH
     Route: 042
     Dates: start: 20180227
  5. ZOPLICONE [Concomitant]
     Active Substance: ZOPICLONE
  6. TOPIRAMATE. [Concomitant]
     Active Substance: TOPIRAMATE
  7. MAGNESIUM [Concomitant]
     Active Substance: MAGNESIUM
  8. PANTOPRAZOLE [Concomitant]
     Active Substance: PANTOPRAZOLE
  9. MELATONIN [Concomitant]
     Active Substance: MELATONIN

REACTIONS (14)
  - Weight increased [Not Recovered/Not Resolved]
  - Sensation of foreign body [Unknown]
  - Nasopharyngitis [Recovering/Resolving]
  - Clumsiness [Not Recovered/Not Resolved]
  - Therapeutic response shortened [Unknown]
  - Headache [Not Recovered/Not Resolved]
  - Pruritus [Not Recovered/Not Resolved]
  - Stress [Not Recovered/Not Resolved]
  - Vaginal discharge [Not Recovered/Not Resolved]
  - Cough [Not Recovered/Not Resolved]
  - Cystitis [Recovered/Resolved]
  - Rhinorrhoea [Not Recovered/Not Resolved]
  - Paranasal sinus discomfort [Recovering/Resolving]
  - Malaise [Unknown]

NARRATIVE: CASE EVENT DATE: 20180314
